FAERS Safety Report 6844836-6 (Version None)
Quarter: 2010Q3

REPORT INFORMATION
  Report Type: 
  Country: None (occurrence: None)
  Receive Date: 20100713
  Receipt Date: 20100210
  Transmission Date: 20110219
  Serious: Yes (Hospitalization)
  Sender: FDA-Public Use
  Company Number: 1-17432052

PATIENT
  Age: 48 Year
  Sex: Female
  Weight: 86.1834 kg

DRUGS (8)
  1. QUALAQUIN [Suspect]
     Indication: MUSCLE SPASMS
     Dosage: 1 AT BEDTIME, AS NEEDED, ORAL
     Route: 048
     Dates: start: 20051005, end: 20061201
  2. IBUPROFEN TABLETS [Suspect]
     Indication: PAIN
     Dosage: UP TO 1200 MG/DAY, ORAL
     Route: 048
  3. FLORICET [Concomitant]
  4. ZOLOFT [Concomitant]
  5. PREVACID [Concomitant]
  6. TAMOXIFEN [Concomitant]
  7. ALEVE [Suspect]
     Indication: PAIN
     Dosage: 8-12 TABLET PER DAY
  8. QUININE SULFATE [Suspect]
     Indication: MUSCLE SPASMS
     Dosage: 1 AT BEDTIME, AS NEEDED
     Dates: start: 20060417, end: 20061201

REACTIONS (27)
  - ABDOMINAL PAIN [None]
  - ABDOMINAL PAIN UPPER [None]
  - ANURIA [None]
  - ARTHRALGIA [None]
  - BACK PAIN [None]
  - BLOOD LACTATE DEHYDROGENASE INCREASED [None]
  - CHILLS [None]
  - CHOLECYSTITIS ACUTE [None]
  - DIALYSIS [None]
  - FATIGUE [None]
  - HAEMOLYTIC URAEMIC SYNDROME [None]
  - HYPERTENSIVE ENCEPHALOPATHY [None]
  - LIVER FUNCTION TEST ABNORMAL [None]
  - MIGRAINE [None]
  - NAUSEA [None]
  - PAIN [None]
  - PELVIC DISCOMFORT [None]
  - POOR QUALITY SLEEP [None]
  - QUALITY OF LIFE DECREASED [None]
  - RENAL FAILURE [None]
  - RENAL FAILURE ACUTE [None]
  - REVERSIBLE POSTERIOR LEUKOENCEPHALOPATHY SYNDROME [None]
  - SYNCOPE [None]
  - TACHYARRHYTHMIA [None]
  - THROMBOTIC THROMBOCYTOPENIC PURPURA [None]
  - UNEVALUABLE EVENT [None]
  - VOMITING [None]
